FAERS Safety Report 21299070 (Version 1)
Quarter: 2022Q3

REPORT INFORMATION
  Report Type: Spontaneous
  Country: US (occurrence: None)
  Receive Date: 20220905
  Receipt Date: 20220905
  Transmission Date: 20221026
  Serious: Yes (Life-Threatening, Disabling)
  Sender: FDA-Public Use
  Company Number: None

PATIENT
  Age: 32 Year
  Sex: Male
  Weight: 111.15 kg

DRUGS (1)
  1. SERTRALINE [Suspect]
     Active Substance: SERTRALINE HYDROCHLORIDE
     Indication: Anxiety
     Dosage: OTHER QUANTITY : 1 TABLET(S);?FREQUENCY : DAILY;?
     Route: 048
     Dates: start: 20220823, end: 20220823

REACTIONS (10)
  - Heart rate increased [None]
  - Hyperhidrosis [None]
  - Blood pressure increased [None]
  - Hypersensitivity [None]
  - Abdominal discomfort [None]
  - Dizziness [None]
  - Headache [None]
  - Diarrhoea [None]
  - Tinnitus [None]
  - Self-injurious ideation [None]

NARRATIVE: CASE EVENT DATE: 20220823
